FAERS Safety Report 10471024 (Version 1)
Quarter: 2014Q3

REPORT INFORMATION
  Report Type: Spontaneous
  Country: US (occurrence: None)
  Receive Date: 20140917
  Receipt Date: 20140917
  Transmission Date: 20150326
  Serious: No
  Sender: FDA-Public Use
  Company Number: 2014CT000117

PATIENT
  Age: 60 Year
  Sex: Female

DRUGS (1)
  1. KORLYM [Suspect]
     Active Substance: MIFEPRISTONE
     Indication: BLOOD CORTISOL INCREASED
     Dates: start: 2014

REACTIONS (9)
  - Fluid overload [None]
  - Depression [None]
  - Blood pressure increased [None]
  - Oedema peripheral [None]
  - Breast oedema [None]
  - Peau d^orange [None]
  - Telangiectasia [None]
  - Blood potassium decreased [None]
  - Anxiety [None]

NARRATIVE: CASE EVENT DATE: 2014
